FAERS Safety Report 23349404 (Version 2)
Quarter: 2024Q1

REPORT INFORMATION
  Report Type: Report from Study
  Country: US (occurrence: US)
  Receive Date: 20231229
  Receipt Date: 20240313
  Transmission Date: 20240410
  Serious: Yes (Hospitalization, Other)
  Sender: FDA-Public Use
  Company Number: US-TEVA-VS-3138144

PATIENT
  Age: 26 Year
  Sex: Female

DRUGS (1)
  1. DEXAMETHASONE [Suspect]
     Active Substance: DEXAMETHASONE
     Indication: COVID-19
     Route: 065

REACTIONS (5)
  - Bradycardia [Unknown]
  - Live birth [Unknown]
  - Exposure during pregnancy [Unknown]
  - Off label use [Unknown]
  - Caesarean section [Unknown]
